FAERS Safety Report 4727573-3 (Version None)
Quarter: 2005Q3

REPORT INFORMATION
  Report Type: 
  Country: None (occurrence: None)
  Receive Date: 20050727
  Receipt Date: 20050727
  Transmission Date: 20060218
  Serious: Yes (Other)
  Sender: FDA-Public Use
  Company Number: None

PATIENT
  Age: 62 Year
  Sex: Male
  Weight: 98.4 kg

DRUGS (3)
  1. CANDESARTAN 32 MG PO QD [Suspect]
     Indication: CORONARY ARTERY DISEASE
     Dosage: 32 MG PO QD
     Route: 048
  2. CANDESARTAN 32 MG PO QD [Suspect]
     Indication: DIABETES MELLITUS
     Dosage: 32 MG PO QD
     Route: 048
  3. SPIRONOLACTONE 25MG TAB [Suspect]
     Dosage: 25 MG PO QD
     Route: 048

REACTIONS (1)
  - ARRHYTHMIA [None]
